FAERS Safety Report 5694704-0 (Version None)
Quarter: 2008Q2

REPORT INFORMATION
  Report Type: 
  Country: None (occurrence: None)
  Receive Date: 20080404
  Receipt Date: 20080327
  Transmission Date: 20081010
  Serious: Yes (Hospitalization)
  Sender: FDA-Public Use
  Company Number: B0508376A

PATIENT
  Age: 38 Year
  Sex: Female

DRUGS (1)
  1. LAMICTAL [Suspect]
     Indication: EPILEPSY
     Route: 048
     Dates: start: 20071201, end: 20080209

REACTIONS (4)
  - HEPATIC CYST [None]
  - NAUSEA [None]
  - VOMITING [None]
  - WEIGHT DECREASED [None]
